FAERS Safety Report 5476683-4 (Version None)
Quarter: 2007Q4

REPORT INFORMATION
  Report Type: 
  Country: None (occurrence: None)
  Receive Date: 20071001
  Receipt Date: 20070913
  Transmission Date: 20080405
  Serious: Yes (Death)
  Sender: FDA-Public Use
  Company Number: B0488083A

PATIENT
  Age: 53 Year
  Sex: Male

DRUGS (9)
  1. AUGMENTIN (FORMULATION UNKNOWN) (AMO. TRIHYD+POT.CLAVULAN.) [Suspect]
  2. ACETAMINOPHEN [Suspect]
     Indication: ANALGESIA
     Dosage: ORAL
     Route: 048
  3. DICLOFENAC SODIUM [Concomitant]
  4. METOCLOPRAMIDE [Concomitant]
  5. OMEPRAZOLE [Concomitant]
  6. GENTAMICIN SULFATE [Suspect]
  7. LEVOFLOXACIN [Suspect]
  8. METRONIDAZOLE [Suspect]
  9. VANCOMYCIN [Suspect]

REACTIONS (4)
  - DISORIENTATION [None]
  - GENERAL PHYSICAL HEALTH DETERIORATION [None]
  - METABOLIC ACIDOSIS [None]
  - MYOCARDIAL INFARCTION [None]
